FAERS Safety Report 25256109 (Version 1)
Quarter: 2025Q2

REPORT INFORMATION
  Report Type: Spontaneous
  Country: US (occurrence: None)
  Receive Date: 20250430
  Receipt Date: 20250430
  Transmission Date: 20250717
  Serious: No
  Sender: FDA-CTU
  Company Number: None

PATIENT

DRUGS (1)
  1. HUMIRA [Suspect]
     Active Substance: ADALIMUMAB

REACTIONS (11)
  - Arthralgia [None]
  - Joint swelling [None]
  - Product use issue [None]
  - Sinusitis [None]
  - Fungal infection [None]
  - Urinary tract infection [None]
  - Blood pressure decreased [None]
  - Vomiting [None]
  - Chest pain [None]
  - Blood magnesium decreased [None]
  - Blood potassium decreased [None]
